FAERS Safety Report 11714543 (Version 1)
Quarter: 2015Q4

REPORT INFORMATION
  Report Type: Spontaneous
  Country: US (occurrence: None)
  Receive Date: 20151106
  Receipt Date: 20151106
  Transmission Date: 20160304
  Serious: Yes (Hospitalization)
  Sender: FDA-Public Use
  Company Number: None

PATIENT
  Age: 73 Year
  Sex: Male
  Weight: 51.7 kg

DRUGS (4)
  1. ZOSYN [Concomitant]
     Active Substance: PIPERACILLIN SODIUM\TAZOBACTAM SODIUM
  2. RIVAROXABAN 15, 20 MG JANSSEN ORTHO, LLC [Suspect]
     Active Substance: RIVAROXABAN
     Indication: PULMONARY EMBOLISM
     Route: 048
     Dates: start: 20150919, end: 20150922
  3. RIVAROXABAN 15, 20 MG JANSSEN ORTHO, LLC [Suspect]
     Active Substance: RIVAROXABAN
     Indication: DEEP VEIN THROMBOSIS
     Route: 048
     Dates: start: 20150919, end: 20150922
  4. POTASSIUM CHLORIDE 40 MEQ IN 0.9% NACL 500 ML [Concomitant]

REACTIONS (1)
  - Retroperitoneal haematoma [None]

NARRATIVE: CASE EVENT DATE: 20150924
